FAERS Safety Report 8571415-5 (Version None)
Quarter: 2012Q3

REPORT INFORMATION
  Report Type: 
  Country: None (occurrence: None)
  Receive Date: 20120806
  Receipt Date: 20120726
  Transmission Date: 20120928
  Serious: Yes (Other)
  Sender: FDA-Public Use
  Company Number: BR-JNJFOC-20120800368

PATIENT
  Sex: Female
  Weight: 61 kg

DRUGS (2)
  1. REMICADE [Suspect]
     Route: 042
     Dates: start: 20111208
  2. REMICADE [Suspect]
     Indication: CROHN'S DISEASE
     Route: 042
     Dates: start: 20120713, end: 20120713

REACTIONS (6)
  - RASH [None]
  - INFUSION RELATED REACTION [None]
  - VERTIGO [None]
  - HYPERTENSION [None]
  - HEART RATE INCREASED [None]
  - EPIGASTRIC DISCOMFORT [None]
